FAERS Safety Report 4729311-7 (Version None)
Quarter: 2005Q3

REPORT INFORMATION
  Report Type: 
  Country: None (occurrence: None)
  Receive Date: 20050729
  Receipt Date: 20050720
  Transmission Date: 20060218
  Serious: Yes (Hospitalization, Other)
  Sender: FDA-Public Use
  Company Number: US-BRISTOL-MYERS SQUIBB COMPANY-13044599

PATIENT
  Sex: Male

DRUGS (3)
  1. ABILIFY [Suspect]
     Route: 048
  2. RITALIN LA [Concomitant]
     Route: 048
  3. INDERAL [Concomitant]
     Route: 048

REACTIONS (3)
  - APHASIA [None]
  - CEREBROVASCULAR ACCIDENT [None]
  - MOTOR DYSFUNCTION [None]
